FAERS Safety Report 13797866 (Version 1)
Quarter: 2017Q3

REPORT INFORMATION
  Report Type: Spontaneous
  Country: US (occurrence: US)
  Receive Date: 20170727
  Receipt Date: 20170727
  Transmission Date: 20171127
  Serious: Yes (Hospitalization)
  Sender: FDA-Public Use
  Company Number: US-SUN PHARMACEUTICAL INDUSTRIES LTD-2017US-145838

PATIENT
  Age: 82 Year
  Sex: Female

DRUGS (1)
  1. ERGOCALCIFEROL. [Suspect]
     Active Substance: ERGOCALCIFEROL
     Indication: PRODUCT USED FOR UNKNOWN INDICATION
     Dosage: 50000 IU, 1/WEEK
     Route: 065

REACTIONS (4)
  - Toxicity to various agents [Unknown]
  - Vitamin D increased [Not Recovered/Not Resolved]
  - Diarrhoea [Unknown]
  - Hypercalcaemia [Recovered/Resolved]
